FAERS Safety Report 6307308-3 (Version None)
Quarter: 2009Q3

REPORT INFORMATION
  Report Type: 
  Country: None (occurrence: None)
  Receive Date: 20090811
  Receipt Date: 20090630
  Transmission Date: 20100115
  Serious: Yes (Other)
  Sender: FDA-Public Use
  Company Number: 1000007154

PATIENT
  Age: 56 Year
  Sex: Female

DRUGS (16)
  1. SAVELLA [Suspect]
     Indication: FIBROMYALGIA
     Dosage: 12.5 MG (12.5 MG, 1 IN 1 D), ORAL : 25 MG (12.5 MG, 2 IN 1 D), ORAL : 50 MG (25 MG, 2 IN 1 D), ORAL
     Route: 048
     Dates: start: 20090511, end: 20090511
  2. SAVELLA [Suspect]
     Indication: FIBROMYALGIA
     Dosage: 12.5 MG (12.5 MG, 1 IN 1 D), ORAL : 25 MG (12.5 MG, 2 IN 1 D), ORAL : 50 MG (25 MG, 2 IN 1 D), ORAL
     Route: 048
     Dates: start: 20090512, end: 20090513
  3. SAVELLA [Suspect]
     Indication: FIBROMYALGIA
     Dosage: 12.5 MG (12.5 MG, 1 IN 1 D), ORAL : 25 MG (12.5 MG, 2 IN 1 D), ORAL : 50 MG (25 MG, 2 IN 1 D), ORAL
     Route: 048
     Dates: start: 20090514, end: 20090517
  4. SAVELLA [Suspect]
     Indication: FIBROMYALGIA
     Dosage: 100 MG (50 MG, 2 IN 1 D), ORAL
     Route: 048
     Dates: start: 20090518, end: 20090521
  5. ASPIRIN [Concomitant]
  6. VERAPAMIL [Concomitant]
  7. CELEXA [Concomitant]
  8. CALCIUM [Concomitant]
  9. B COMPLEX VITAMINS [Concomitant]
  10. VALIUM [Concomitant]
  11. LIDODERM [Concomitant]
  12. VITAMIN B-12 [Concomitant]
  13. AMBIEN [Concomitant]
  14. XANAX [Concomitant]
  15. VICOPROFEN [Concomitant]
  16. CENTRUM [Concomitant]

REACTIONS (4)
  - CHEST PAIN [None]
  - CRYING [None]
  - DEPRESSED MOOD [None]
  - SUICIDAL IDEATION [None]
